FAERS Safety Report 6173251-6 (Version None)
Quarter: 2009Q2

REPORT INFORMATION
  Report Type: 
  Country: None (occurrence: None)
  Receive Date: 20090424
  Receipt Date: 20090105
  Transmission Date: 20091009
  Serious: No
  Sender: FDA-Public Use
  Company Number: ALL1-2009-00014

PATIENT
  Age: 19 Year
  Sex: Female

DRUGS (2)
  1. VYVANSE [Suspect]
     Dosage: 100 MG, 1X/DAY:QD, ORAL
     Route: 048
     Dates: start: 20080901
  2. LEXAPRO [Concomitant]

REACTIONS (2)
  - DISTURBANCE IN ATTENTION [None]
  - OVERDOSE [None]
